FAERS Safety Report 8536534-8 (Version None)
Quarter: 2012Q3

REPORT INFORMATION
  Report Type: 
  Country: None (occurrence: None)
  Receive Date: 20120725
  Receipt Date: 20120720
  Transmission Date: 20120928
  Serious: Yes (Hospitalization, Other)
  Sender: FDA-Public Use
  Company Number: CA-ROCHE-659761

PATIENT
  Sex: Female
  Weight: 70.3 kg

DRUGS (9)
  1. PREDNISONE [Concomitant]
  2. VFEND [Concomitant]
     Dosage: TAKEN AS ANTIFUNGAL FOR LUNGS
  3. MABTHERA [Suspect]
     Route: 042
     Dates: start: 20100914, end: 20110531
  4. CRESTOR [Concomitant]
     Indication: BLOOD CHOLESTEROL INCREASED
  5. MABTHERA [Suspect]
     Indication: CHRONIC LYMPHOCYTIC LEUKAEMIA
     Dosage: FORM: INFUSION
     Route: 042
  6. CLARITHROMYCIN [Concomitant]
  7. PANTOPRAZOLE [Concomitant]
     Indication: GASTROOESOPHAGEAL REFLUX DISEASE
  8. MABTHERA [Suspect]
     Route: 042
  9. ATENOLOL [Concomitant]
     Indication: BLOOD PRESSURE

REACTIONS (22)
  - IMMUNODEFICIENCY [None]
  - SINUSITIS [None]
  - PNEUMONIA [None]
  - PRODUCTIVE COUGH [None]
  - OROPHARYNGEAL PAIN [None]
  - PHARYNGITIS [None]
  - DISEASE PROGRESSION [None]
  - ASTHMA [None]
  - ACUTE RESPIRATORY DISTRESS SYNDROME [None]
  - HYPERGLOBULINAEMIA [None]
  - THROMBOCYTOPENIA [None]
  - SINUS CONGESTION [None]
  - BONE MARROW FAILURE [None]
  - BRONCHOPULMONARY ASPERGILLOSIS [None]
  - ANAEMIA [None]
  - EYE INFECTION [None]
  - PLATELET COUNT DECREASED [None]
  - HYPOGAMMAGLOBULINAEMIA [None]
  - CHILLS [None]
  - DYSPNOEA [None]
  - LUNG INFILTRATION [None]
  - NASOPHARYNGITIS [None]
